FAERS Safety Report 8771000 (Version 3)
Quarter: 2012Q4

REPORT INFORMATION
  Report Type: 
  Country: US (occurrence: US)
  Receive Date: 20120906
  Receipt Date: 20121130
  Transmission Date: 20130627
  Serious: No
  Sender: FDA-Public Use
  Company Number: US-009507513-1209USA001032

PATIENT
  Age: 76 Year
  Sex: Female
  Weight: 62.95 kg

DRUGS (2)
  1. DULERA [Suspect]
     Indication: CHRONIC OBSTRUCTIVE PULMONARY DISEASE
     Dosage: 2 puffs, bid
     Route: 055
     Dates: start: 20120720, end: 20120814
  2. SPIRIVA [Concomitant]
     Dosage: UNK

REACTIONS (3)
  - Pain in extremity [Recovered/Resolved]
  - Muscle spasms [Recovering/Resolving]
  - Muscular weakness [Recovering/Resolving]
